FAERS Safety Report 6445395-2 (Version None)
Quarter: 2009Q4

REPORT INFORMATION
  Report Type: 
  Country: None (occurrence: None)
  Receive Date: 20091118
  Receipt Date: 20091104
  Transmission Date: 20100525
  Serious: Yes (Other)
  Sender: FDA-Public Use
  Company Number: PHHY2009CA48279

PATIENT
  Sex: Male

DRUGS (1)
  1. CLOZARIL [Suspect]
     Dosage: UNK
     Dates: start: 20090629

REACTIONS (3)
  - LEUKOCYTOSIS [None]
  - POLYCYTHAEMIA [None]
  - THROMBOCYTOSIS [None]
